FAERS Safety Report 4546864-2 (Version None)
Quarter: 2005Q1

REPORT INFORMATION
  Report Type: 
  Country: None (occurrence: None)
  Receive Date: 20050105
  Receipt Date: 20041224
  Transmission Date: 20050727
  Serious: Yes (Other)
  Sender: FDA-Public Use
  Company Number: 2004120666

PATIENT
  Age: 47 Year
  Sex: Male

DRUGS (2)
  1. SULPERAZON                (SULBACTAM, CEFOPERAZONE) [Suspect]
     Indication: ILL-DEFINED DISORDER
     Dosage: INTRAVENOUS
     Route: 042
     Dates: end: 20041029
  2. ULINASTATIN (ULINASTATIN) [Concomitant]

REACTIONS (4)
  - ABDOMINAL PAIN [None]
  - FEELING ABNORMAL [None]
  - FLUSHING [None]
  - STRIDOR [None]
